FAERS Safety Report 21936658 (Version 1)
Quarter: 2023Q1

REPORT INFORMATION
  Report Type: Spontaneous
  Country: CA (occurrence: CA)
  Receive Date: 20230201
  Receipt Date: 20230201
  Transmission Date: 20230417
  Serious: Yes (Hospitalization)
  Sender: FDA-Public Use
  Company Number: CA-PFIZER INC-202300039758

PATIENT
  Age: 33 Year
  Sex: Female

DRUGS (2)
  1. DACARBAZINE [Suspect]
     Active Substance: DACARBAZINE
     Dosage: UNK
  2. BLEOMYCIN SULFATE [Suspect]
     Active Substance: BLEOMYCIN SULFATE
     Dosage: UNK

REACTIONS (5)
  - Body temperature increased [Recovered/Resolved]
  - Chills [Recovered/Resolved]
  - Tachycardia [Recovered/Resolved]
  - Tremor [Recovered/Resolved]
  - Vomiting [Recovered/Resolved]
